FAERS Safety Report 9072376 (Version 1)
Quarter: 2013Q1

REPORT INFORMATION
  Report Type: Spontaneous
  Country: BR (occurrence: BR)
  Receive Date: 20130207
  Receipt Date: 20130207
  Transmission Date: 20140127
  Serious: Yes (Hospitalization)
  Sender: FDA-Public Use
  Company Number: BR-PFIZER INC-2013047208

PATIENT
  Age: 41 Year
  Sex: Male

DRUGS (2)
  1. LYRICA [Suspect]
     Indication: PAIN
     Dosage: 75 MG, 2X/DAY
     Route: 048
     Dates: start: 2012
  2. TRAMAL [Suspect]
     Dosage: UNK

REACTIONS (3)
  - Spinal disorder [Unknown]
  - Pain [Unknown]
  - Arthrodesis [None]
